FAERS Safety Report 6636307-7 (Version None)
Quarter: 2010Q1

REPORT INFORMATION
  Report Type: 
  Country: None (occurrence: None)
  Receive Date: 20100316
  Receipt Date: 20100308
  Transmission Date: 20100710
  Serious: Yes (Death, Hospitalization)
  Sender: FDA-Public Use
  Company Number: FR-ROCHE-689927

PATIENT
  Sex: Female

DRUGS (6)
  1. XELODA [Suspect]
     Indication: BREAST CANCER
     Route: 048
     Dates: start: 20091226, end: 20100108
  2. TAMOXIFEN CITRATE [Concomitant]
     Dates: end: 20050101
  3. ARIMIDEX [Concomitant]
     Dates: end: 20070101
  4. FEMARA [Concomitant]
     Dates: end: 20070101
  5. FEC REGIMEN [Concomitant]
  6. FASLODEX [Concomitant]

REACTIONS (5)
  - APLASIA [None]
  - PYREXIA [None]
  - SHOCK [None]
  - SKIN LESION [None]
  - VOMITING [None]
